FAERS Safety Report 7523762-3 (Version None)
Quarter: 2011Q2

REPORT INFORMATION
  Report Type: 
  Country: None (occurrence: None)
  Receive Date: 20110603
  Receipt Date: 20110523
  Transmission Date: 20111010
  Serious: Yes (Hospitalization)
  Sender: FDA-Public Use
  Company Number: GB-MYLANLABS-2011S1010625

PATIENT
  Age: 52 Year
  Sex: Female

DRUGS (4)
  1. FLUOROURACIL [Concomitant]
     Indication: BREAST CANCER
  2. EPIRUBICIN [Suspect]
     Indication: BREAST CANCER
  3. CYCLOPHOSPHAMIDE [Concomitant]
     Indication: BREAST CANCER
  4. DOTHIEPIN [Concomitant]
     Indication: DEPRESSION

REACTIONS (5)
  - TACHYCARDIA [None]
  - CARDIOMYOPATHY [None]
  - APHASIA [None]
  - CARDIAC FAILURE [None]
  - RALES [None]
